FAERS Safety Report 12627093 (Version 2)
Quarter: 2016Q3

REPORT INFORMATION
  Report Type: Report from Study
  Country: US (occurrence: US)
  Receive Date: 20160805
  Receipt Date: 20160909
  Transmission Date: 20161109
  Serious: Yes (Other)
  Sender: FDA-Public Use
  Company Number: US-ABBVIE-16K-163-1688259-00

PATIENT
  Age: 54 Year
  Sex: Female

DRUGS (3)
  1. HUMIRA [Suspect]
     Active Substance: ADALIMUMAB
     Indication: RHEUMATOID ARTHRITIS
     Route: 058
     Dates: start: 201605, end: 201605
  2. HUMIRA [Suspect]
     Active Substance: ADALIMUMAB
     Route: 058
     Dates: start: 20160629
  3. PREDNISONE. [Suspect]
     Active Substance: PREDNISONE
     Indication: PRODUCT USED FOR UNKNOWN INDICATION
     Route: 065

REACTIONS (13)
  - Suicidal ideation [Unknown]
  - Injection site bruising [Recovered/Resolved]
  - Gait disturbance [Unknown]
  - Arthralgia [Unknown]
  - Discomfort [Unknown]
  - Headache [Unknown]
  - Weight increased [Unknown]
  - Activities of daily living impaired [Unknown]
  - Hyperhidrosis [Unknown]
  - Pain [Unknown]
  - Post-traumatic stress disorder [Unknown]
  - Stomatitis [Unknown]
  - Injection site haemorrhage [Recovered/Resolved]

NARRATIVE: CASE EVENT DATE: 2016
